FAERS Safety Report 6059131-5 (Version None)
Quarter: 2009Q1

REPORT INFORMATION
  Report Type: 
  Country: None (occurrence: None)
  Receive Date: 20090127
  Receipt Date: 20090127
  Transmission Date: 20090719
  Serious: No
  Sender: FDA-Public Use
  Company Number: None

PATIENT
  Age: 35 Year
  Sex: Female
  Weight: 43.0917 kg

DRUGS (1)
  1. SEPTOCAINE [Suspect]
     Indication: TOOTH REPAIR
     Dosage: 1.7 PER CAPSURE 2 CAPSULES DENTAL
     Route: 004
     Dates: start: 20080218, end: 20080218

REACTIONS (7)
  - HYPOAESTHESIA [None]
  - HYPOAESTHESIA FACIAL [None]
  - JAW DISORDER [None]
  - MUSCLE TIGHTNESS [None]
  - TOOTH DISORDER [None]
  - TRIGEMINAL NEURALGIA [None]
  - VISUAL ACUITY REDUCED [None]
